FAERS Safety Report 9443340 (Version 1)
Quarter: 2013Q3

REPORT INFORMATION
  Report Type: Spontaneous
  Country: US (occurrence: US)
  Receive Date: 20130806
  Receipt Date: 20130806
  Transmission Date: 20140515
  Serious: No
  Sender: FDA-Public Use
  Company Number: US-BAXTER-2013BAX017843

PATIENT
  Age: 9 Year
  Sex: Male
  Weight: 31.5 kg

DRUGS (1)
  1. GAMMAGARD LIQUID [Suspect]
     Indication: IMMUNODEFICIENCY COMMON VARIABLE
     Dosage: FIRST INFUSION; FOUR SC INJECTIONS OF 5 GRAMS EACH
     Route: 058
     Dates: start: 20130508

REACTIONS (1)
  - Infusion site pain [Recovered/Resolved]
